APPROVED DRUG PRODUCT: VITAMIN K1
Active Ingredient: PHYTONADIONE
Strength: 1MG/0.5ML
Dosage Form/Route: INJECTABLE;INJECTION
Application: A087954 | Product #001 | TE Code: BP
Applicant: HOSPIRA INC
Approved: Jul 25, 1983 | RLD: Yes | RS: Yes | Type: RX